FAERS Safety Report 26165353 (Version 1)
Quarter: 2025Q4

REPORT INFORMATION
  Report Type: Report from Study
  Country: US (occurrence: US)
  Receive Date: 20251216
  Receipt Date: 20251216
  Transmission Date: 20260118
  Serious: Yes (Other)
  Sender: TAKEDA
  Company Number: US-TAKEDA-2025TUS031108

PATIENT
  Age: 62 Year
  Sex: Male

DRUGS (4)
  1. MARIBAVIR [Suspect]
     Active Substance: MARIBAVIR
     Indication: Cytomegalovirus infection
     Dosage: 400 MILLIGRAM, BID
     Dates: start: 20250322
  2. MARIBAVIR [Suspect]
     Active Substance: MARIBAVIR
     Dosage: 400 MILLIGRAM, BID
  3. MARIBAVIR [Suspect]
     Active Substance: MARIBAVIR
     Dosage: 400 MILLIGRAM, BID
  4. MARIBAVIR [Suspect]
     Active Substance: MARIBAVIR
     Dosage: 400 MILLIGRAM, BID
     Dates: start: 20250908

REACTIONS (10)
  - Cytomegalovirus infection reactivation [Recovered/Resolved]
  - Tremor [Unknown]
  - Blood magnesium increased [Unknown]
  - Peripheral swelling [Unknown]
  - Joint swelling [Unknown]
  - Muscle fatigue [Unknown]
  - Product use issue [Unknown]
  - Taste disorder [Not Recovered/Not Resolved]
  - Dysgeusia [Unknown]
  - Nausea [Unknown]
